FAERS Safety Report 7508150-8 (Version None)
Quarter: 2011Q2

REPORT INFORMATION
  Report Type: 
  Country: None (occurrence: None)
  Receive Date: 20110527
  Receipt Date: 20110513
  Transmission Date: 20111010
  Serious: Yes (Other)
  Sender: FDA-Public Use
  Company Number: US-BAYER-201037412NA

PATIENT
  Age: 31 Year
  Sex: Female
  Weight: 65.76 kg

DRUGS (6)
  1. YASMIN [Suspect]
     Indication: CONTRACEPTION
     Dosage: 1 DF, QD
     Dates: start: 20060101, end: 20060501
  2. YAZ [Suspect]
     Dosage: 1 DF, QD
     Dates: start: 20060501, end: 20091201
  3. PHENERGAN HCL [Concomitant]
     Dosage: 1 DF, PRN
  4. YAZ [Suspect]
     Indication: CONTRACEPTION
     Dosage: UNK
     Dates: start: 20040101
  5. YAZ [Suspect]
     Dosage: 1 DF, QD
     Dates: start: 20060801, end: 20091201
  6. VICODIN [Concomitant]
     Indication: PAIN
     Dosage: 25 MG, UNK

REACTIONS (6)
  - ABDOMINAL PAIN UPPER [None]
  - CHOLECYSTITIS CHRONIC [None]
  - CHOLELITHIASIS [None]
  - GALLBLADDER INJURY [None]
  - VOMITING [None]
  - NAUSEA [None]
